FAERS Safety Report 11954754 (Version 1)
Quarter: 2016Q1

REPORT INFORMATION
  Report Type: Spontaneous
  Country: FR (occurrence: FR)
  Receive Date: 20160126
  Receipt Date: 20160126
  Transmission Date: 20160526
  Serious: Yes (Hospitalization)
  Sender: FDA-Public Use
  Company Number: FR-ELI_LILLY_AND_COMPANY-FR201601007907

PATIENT
  Age: 86 Year
  Sex: Female

DRUGS (4)
  1. ATORVASTATINE                      /01326101/ [Suspect]
     Active Substance: ATORVASTATIN
     Indication: PRODUCT USED FOR UNKNOWN INDICATION
     Dosage: 1 DF, QD
     Route: 048
     Dates: start: 201509, end: 20151202
  2. SERESTA [Suspect]
     Active Substance: OXAZEPAM
     Indication: ANXIETY
     Dosage: 5 MG, QD
     Route: 048
     Dates: start: 201509, end: 20151202
  3. LEVOCETIRIZINE [Suspect]
     Active Substance: LEVOCETIRIZINE
     Indication: PRODUCT USED FOR UNKNOWN INDICATION
     Dosage: 1 DF, QD
     Route: 048
     Dates: start: 201509, end: 20151202
  4. CYMBALTA [Suspect]
     Active Substance: DULOXETINE HYDROCHLORIDE
     Indication: DEPRESSION
     Dosage: 30 MG, QD
     Route: 048
     Dates: start: 201509, end: 20151202

REACTIONS (3)
  - Apraxia [Unknown]
  - Extrapyramidal disorder [Unknown]
  - Somnolence [Recovering/Resolving]

NARRATIVE: CASE EVENT DATE: 20151115
